FAERS Safety Report 7683050-1 (Version None)
Quarter: 2011Q3

REPORT INFORMATION
  Report Type: 
  Country: None (occurrence: None)
  Receive Date: 20110815
  Receipt Date: 20110810
  Transmission Date: 20111222
  Serious: Yes (Hospitalization)
  Sender: FDA-Public Use
  Company Number: US-B.I. PHARMACEUTICALS,INC./RIDGEFIELD-2011-RU-00061BP

PATIENT
  Sex: Male
  Weight: 67.5 kg

DRUGS (1)
  1. TIOTROPIUM BROMIDE [Suspect]
     Indication: CYSTIC FIBROSIS
     Dates: start: 20110707, end: 20110725

REACTIONS (6)
  - CHEST PAIN [None]
  - SPUTUM INCREASED [None]
  - LUNG DISORDER [None]
  - COUGH [None]
  - FORCED EXPIRATORY VOLUME DECREASED [None]
  - DYSPNOEA [None]
